FAERS Safety Report 23946447 (Version 1)
Quarter: 2024Q2

REPORT INFORMATION
  Report Type: Spontaneous
  Country: GB (occurrence: GB)
  Receive Date: 20240606
  Receipt Date: 20240606
  Transmission Date: 20240716
  Serious: Yes (Hospitalization)
  Sender: FDA-Public Use
  Company Number: GB-ELI_LILLY_AND_COMPANY-GB202405016234

PATIENT
  Age: 50 Year
  Sex: Female

DRUGS (1)
  1. MIRIKIZUMAB [Suspect]
     Active Substance: MIRIKIZUMAB
     Indication: Product used for unknown indication
     Dosage: UNK UNK, OTHER (INDUCTION DOSE)
     Route: 065
     Dates: start: 20240515

REACTIONS (2)
  - Dizziness [Recovering/Resolving]
  - Headache [Unknown]
